FAERS Safety Report 15386660 (Version 3)
Quarter: 2019Q2

REPORT INFORMATION
  Report Type: Spontaneous
  Country: US (occurrence: US)
  Receive Date: 20180914
  Receipt Date: 20190408
  Transmission Date: 20190711
  Serious: Yes (Hospitalization, Other)
  Sender: FDA-Public Use
  Company Number: US-ASTRAZENECA-2018SF16107

PATIENT
  Age: 23439 Day
  Sex: Female
  Weight: 74.8 kg

DRUGS (42)
  1. FOLIC ACID. [Concomitant]
     Active Substance: FOLIC ACID
  2. NORCO [Concomitant]
     Active Substance: ACETAMINOPHEN\HYDROCODONE BITARTRATE
  3. SINEQUAN [Concomitant]
     Active Substance: DOXEPIN HYDROCHLORIDE
  4. ENOXAPARIN [Concomitant]
     Active Substance: ENOXAPARIN
  5. COREG [Concomitant]
     Active Substance: CARVEDILOL
  6. METHIMAZOLE. [Concomitant]
     Active Substance: METHIMAZOLE
  7. PEPCID AC [Concomitant]
     Active Substance: FAMOTIDINE
  8. CARTIA [Concomitant]
  9. NEXIUM [Suspect]
     Active Substance: ESOMEPRAZOLE MAGNESIUM
     Indication: GASTROOESOPHAGEAL REFLUX DISEASE
     Route: 048
     Dates: start: 2010, end: 2016
  10. ALLOPURINOL. [Concomitant]
     Active Substance: ALLOPURINOL
  11. ONDANSETRON [Concomitant]
     Active Substance: ONDANSETRON
  12. TERAZOSIN [Concomitant]
     Active Substance: TERAZOSIN\TERAZOSIN HYDROCHLORIDE
  13. NEXIUM 24HR [Suspect]
     Active Substance: ESOMEPRAZOLE MAGNESIUM
     Indication: GASTROOESOPHAGEAL REFLUX DISEASE
     Route: 048
     Dates: start: 20160926
  14. CEFAZOLIN [Concomitant]
     Active Substance: CEFAZOLIN
  15. METOPROLOL TARTRATE. [Concomitant]
     Active Substance: METOPROLOL TARTRATE
  16. CHANTIX [Concomitant]
     Active Substance: VARENICLINE TARTRATE
  17. NEXIUM 24HR [Suspect]
     Active Substance: ESOMEPRAZOLE MAGNESIUM
     Indication: GASTROOESOPHAGEAL REFLUX DISEASE
     Route: 048
     Dates: start: 2010, end: 2016
  18. DOCUSATE SODIUM. [Concomitant]
     Active Substance: DOCUSATE SODIUM
  19. DOXEPIN [Concomitant]
     Active Substance: DOXEPIN
  20. HUMALOG [Concomitant]
     Active Substance: INSULIN LISPRO
  21. PRAVASTATIN. [Concomitant]
     Active Substance: PRAVASTATIN
  22. AMBIEN [Concomitant]
     Active Substance: ZOLPIDEM TARTRATE
  23. HYTRIN [Concomitant]
     Active Substance: TERAZOSIN HYDROCHLORIDE
  24. LANTUS [Concomitant]
     Active Substance: INSULIN GLARGINE
  25. LOVENOX [Concomitant]
     Active Substance: ENOXAPARIN SODIUM
  26. ASPIRIN. [Concomitant]
     Active Substance: ASPIRIN
  27. NICARDIPINE [Concomitant]
     Active Substance: NICARDIPINE
  28. LANTUS SOLOSTAR [Concomitant]
     Active Substance: INSULIN GLARGINE
  29. ALBUTEROL SULFATE. [Concomitant]
     Active Substance: ALBUTEROL SULFATE
  30. ADVIL [Concomitant]
     Active Substance: IBUPROFEN
  31. PRILOSEC [Suspect]
     Active Substance: OMEPRAZOLE MAGNESIUM
     Route: 048
     Dates: start: 2010, end: 2016
  32. XANAX [Concomitant]
     Active Substance: ALPRAZOLAM
  33. PRILOSEC OTC [Suspect]
     Active Substance: OMEPRAZOLE MAGNESIUM
     Route: 048
     Dates: start: 2010, end: 2016
  34. AMLODIPINE BESYLATE. [Concomitant]
     Active Substance: AMLODIPINE BESYLATE
  35. DILTIAZEM. [Concomitant]
     Active Substance: DILTIAZEM
  36. FERROUS SULFATE. [Concomitant]
     Active Substance: FERROUS SULFATE
  37. LEVOTHYROXINE. [Concomitant]
     Active Substance: LEVOTHYROXINE
  38. TRAMADOL. [Concomitant]
     Active Substance: TRAMADOL
  39. HYDROCHLOROTHIAZIDE. [Concomitant]
     Active Substance: HYDROCHLOROTHIAZIDE
  40. SIMVASTATIN. [Concomitant]
     Active Substance: SIMVASTATIN
  41. NORMODYNE [Concomitant]
     Active Substance: LABETALOL HYDROCHLORIDE
  42. SYNTHROID [Concomitant]
     Active Substance: LEVOTHYROXINE SODIUM

REACTIONS (6)
  - Tubulointerstitial nephritis [Not Recovered/Not Resolved]
  - Chronic kidney disease [Not Recovered/Not Resolved]
  - Nephrogenic anaemia [Not Recovered/Not Resolved]
  - Renal failure [Not Recovered/Not Resolved]
  - Acute kidney injury [Not Recovered/Not Resolved]
  - Renal tubular injury [Not Recovered/Not Resolved]

NARRATIVE: CASE EVENT DATE: 20161021
